FAERS Safety Report 15384756 (Version 1)
Quarter: 2018Q3

REPORT INFORMATION
  Report Type: Spontaneous
  Country: US (occurrence: US)
  Receive Date: 20180907
  Receipt Date: 20180907
  Transmission Date: 20181010
  Serious: No
  Sender: FDA-Public Use
  Company Number: None

PATIENT
  Age: 68 Year
  Sex: Male
  Weight: 83.25 kg

DRUGS (11)
  1. GABAPENTIN. [Concomitant]
     Active Substance: GABAPENTIN
  2. CAPECITABINE. [Suspect]
     Active Substance: CAPECITABINE
     Indication: BILE DUCT CANCER
     Dosage: ?          OTHER FREQUENCY:BID X14 THEN 7 OFF;?
     Route: 048
     Dates: start: 20180719
  3. AMLODIPINE [Concomitant]
     Active Substance: AMLODIPINE BESYLATE
  4. ONDANSETRON [Concomitant]
     Active Substance: ONDANSETRON
  5. VENTOLINE [Concomitant]
     Active Substance: ALBUTEROL
  6. COLACE [Concomitant]
     Active Substance: DOCUSATE SODIUM
  7. SIMVASTATIN. [Concomitant]
     Active Substance: SIMVASTATIN
  8. IBUPROFEN. [Concomitant]
     Active Substance: IBUPROFEN
  9. LORAZEPAM. [Concomitant]
     Active Substance: LORAZEPAM
  10. PROCHLORPERAZINE. [Concomitant]
     Active Substance: PROCHLORPERAZINE
  11. SENNA?GRX [Concomitant]

REACTIONS (2)
  - Constipation [None]
  - Nausea [None]

NARRATIVE: CASE EVENT DATE: 20180729
